FAERS Safety Report 7452500-8 (Version None)
Quarter: 2011Q2

REPORT INFORMATION
  Report Type: 
  Country: None (occurrence: None)
  Receive Date: 20110502
  Receipt Date: 20100928
  Transmission Date: 20111010
  Serious: No
  Sender: FDA-Public Use
  Company Number: US-ASTRAZENECA-2010SE42156

PATIENT
  Sex: Female

DRUGS (12)
  1. SINGULAIR [Concomitant]
     Route: 065
  2. IRON RILA [Concomitant]
     Route: 065
  3. ZESTRIL [Suspect]
     Route: 048
  4. TEKTURNA [Concomitant]
     Route: 065
  5. ZYRTEC [Concomitant]
     Route: 065
  6. TOPROL-XL [Suspect]
     Route: 048
  7. CRESTOR [Suspect]
     Route: 048
  8. LEVOTHYROXINE [Concomitant]
     Route: 065
  9. KLOR-CONLO MED [Concomitant]
     Route: 065
  10. NEXIUM [Suspect]
     Route: 048
  11. CLONIDINE HCL [Concomitant]
     Route: 065
  12. CYCLOBENZAPRINE [Concomitant]
     Route: 065

REACTIONS (3)
  - BACK DISORDER [None]
  - DRUG HYPERSENSITIVITY [None]
  - POLYARTHRITIS [None]
